FAERS Safety Report 21862997 (Version 1)
Quarter: 2023Q1

REPORT INFORMATION
  Report Type: Spontaneous
  Country: US (occurrence: US)
  Receive Date: 20230114
  Receipt Date: 20230114
  Transmission Date: 20230418
  Serious: Yes (Hospitalization)
  Sender: FDA-Public Use
  Company Number: US-DENDREON PHARMACEUTICAL LLC-2023DEN000001

PATIENT

DRUGS (11)
  1. PROVENGE [Suspect]
     Active Substance: SIPULEUCEL-T
     Indication: Prostate cancer metastatic
     Dosage: DOSE 1
     Route: 042
     Dates: start: 20221220, end: 20221220
  2. PROVENGE [Suspect]
     Active Substance: SIPULEUCEL-T
     Dosage: DOSE 2
     Route: 042
     Dates: start: 20221230, end: 20221230
  3. XGEVA [Concomitant]
     Active Substance: DENOSUMAB
  4. METOPROLOL [Concomitant]
     Active Substance: METOPROLOL
  5. PRAVASTATIN [Concomitant]
     Active Substance: PRAVASTATIN
  6. OZEMPIC [Concomitant]
     Active Substance: SEMAGLUTIDE
  7. LISINOPRIL [Concomitant]
     Active Substance: LISINOPRIL
  8. HYDROCHLOROTHIAZIDE [Concomitant]
     Active Substance: HYDROCHLOROTHIAZIDE
  9. METFORMIN [Concomitant]
     Active Substance: METFORMIN HYDROCHLORIDE
  10. THERACRAN [Concomitant]
  11. MINERALS\VITAMINS [Concomitant]
     Active Substance: MINERALS\VITAMINS

REACTIONS (3)
  - Cardiac failure congestive [None]
  - Acute myocardial infarction [Recovering/Resolving]
  - Chills [None]

NARRATIVE: CASE EVENT DATE: 20221230
